FAERS Safety Report 6902262-5 (Version None)
Quarter: 2010Q3

REPORT INFORMATION
  Report Type: 
  Country: None (occurrence: None)
  Receive Date: 20100803
  Receipt Date: 20080505
  Transmission Date: 20110219
  Serious: No
  Sender: FDA-Public Use
  Company Number: US-PFIZER INC-2008029660

PATIENT
  Sex: Female
  Weight: 83.9 kg

DRUGS (3)
  1. LYRICA [Suspect]
     Indication: FIBROMYALGIA
     Route: 048
     Dates: start: 20060101
  2. CYMBALTA [Concomitant]
     Dates: start: 20080101, end: 20080301
  3. SEROQUEL [Concomitant]

REACTIONS (3)
  - FOOD CRAVING [None]
  - OVERDOSE [None]
  - WEIGHT INCREASED [None]
